FAERS Safety Report 5948012-0 (Version None)
Quarter: 2008Q4

REPORT INFORMATION
  Report Type: 
  Country: None (occurrence: None)
  Receive Date: 20081110
  Receipt Date: 20081110
  Transmission Date: 20090506
  Serious: Yes (Hospitalization)
  Sender: FDA-Public Use
  Company Number: None

PATIENT
  Age: 55 Year
  Sex: Male
  Weight: 95.7 kg

DRUGS (2)
  1. PROPOFOL [Suspect]
     Indication: ANAESTHESIA
     Dosage: 200 MG ONCE IV
     Route: 042
     Dates: start: 20081105, end: 20081105
  2. FENTANYL-100 [Suspect]
     Dosage: 100 MCG ONCE IV
     Route: 042
     Dates: start: 20081105, end: 20081105

REACTIONS (2)
  - OPISTHOTONUS [None]
  - TONIC CONVULSION [None]
